FAERS Safety Report 19047859 (Version 1)
Quarter: 2021Q1

REPORT INFORMATION
  Report Type: Spontaneous
  Country: US (occurrence: US)
  Receive Date: 20210324
  Receipt Date: 20210324
  Transmission Date: 20210420
  Serious: No
  Sender: FDA-Public Use
  Company Number: US-JNJFOC-20210335153

PATIENT
  Age: 31 Year
  Sex: Male

DRUGS (1)
  1. SYMTUZA [Suspect]
     Active Substance: COBICISTAT\DARUNAVIR\EMTRICITABINE\TENOFOVIR ALAFENAMIDE
     Indication: PRODUCT USED FOR UNKNOWN INDICATION
     Route: 048
     Dates: start: 2018

REACTIONS (2)
  - Skin disorder [Recovered/Resolved]
  - Hordeolum [Recovered/Resolved]

NARRATIVE: CASE EVENT DATE: 2020
